FAERS Safety Report 9421362 (Version 1)
Quarter: 2013Q3

REPORT INFORMATION
  Report Type: Spontaneous
  Country: FR (occurrence: FR)
  Receive Date: 20130725
  Receipt Date: 20130725
  Transmission Date: 20140515
  Serious: Yes (Life-Threatening, Hospitalization)
  Sender: FDA-Public Use
  Company Number: FR-PFIZER INC-2013212569

PATIENT
  Age: 44 Year
  Sex: Female

DRUGS (4)
  1. ADEPAL [Suspect]
     Indication: CONTRACEPTION
     Dosage: UNK
     Route: 048
     Dates: start: 200204, end: 20120623
  2. BUPRENORPHINE [Concomitant]
     Indication: DRUG DEPENDENCE
  3. COVERAM [Concomitant]
  4. TERCIAN [Concomitant]

REACTIONS (2)
  - Myocardial infarction [Recovered/Resolved with Sequelae]
  - Acute coronary syndrome [Recovered/Resolved with Sequelae]
